FAERS Safety Report 13078339 (Version 3)
Quarter: 2017Q2

REPORT INFORMATION
  Report Type: Report from Study
  Country: US (occurrence: US)
  Receive Date: 20170102
  Receipt Date: 20170509
  Transmission Date: 20170830
  Serious: Yes (Death, Other)
  Sender: FDA-Public Use
  Company Number: US-009507513-1612USA014490

PATIENT
  Age: 68 Year
  Sex: Male

DRUGS (1)
  1. KEYTRUDA [Suspect]
     Active Substance: PEMBROLIZUMAB
     Indication: GASTROOESOPHAGEAL CANCER
     Dosage: 188 MG, EVERY THREE WEEKS
     Route: 042
     Dates: start: 20161006, end: 20161117

REACTIONS (7)
  - Urinary tract infection [Unknown]
  - Blood lactic acid increased [Unknown]
  - Malignant neoplasm progression [Unknown]
  - Hypotension [Unknown]
  - Product use in unapproved indication [Unknown]
  - Septic shock [Unknown]
  - Death [Fatal]

NARRATIVE: CASE EVENT DATE: 2016
